FAERS Safety Report 25374633 (Version 1)
Quarter: 2025Q2

REPORT INFORMATION
  Report Type: Spontaneous
  Country: US (occurrence: None)
  Receive Date: 20250528
  Receipt Date: 20250528
  Transmission Date: 20250717
  Serious: Yes (Other)
  Sender: FDA-CTU
  Company Number: None

PATIENT
  Age: 67 Year
  Sex: Female
  Weight: 47.6 kg

DRUGS (1)
  1. EVENITY [Suspect]
     Active Substance: ROMOSOZUMAB-AQQG
     Indication: Senile osteoporosis
     Dosage: FREQUENCY : MONTHLY;?
     Route: 058
     Dates: start: 20241003

REACTIONS (5)
  - Injection site swelling [None]
  - Injection site pain [None]
  - Injection site warmth [None]
  - Lymphadenopathy [None]
  - Pain in extremity [None]

NARRATIVE: CASE EVENT DATE: 20250528
